FAERS Safety Report 16884173 (Version 1)
Quarter: 2019Q4

REPORT INFORMATION
  Report Type: Spontaneous
  Country: ES (occurrence: ES)
  Receive Date: 20191004
  Receipt Date: 20191004
  Transmission Date: 20200122
  Serious: Yes (Hospitalization, Disabling)
  Sender: FDA-Public Use
  Company Number: ES-ACCORD-156438

PATIENT
  Age: 67 Year
  Sex: Male
  Weight: 78 kg

DRUGS (2)
  1. HUMIRA [Suspect]
     Active Substance: ADALIMUMAB
     Indication: PSORIATIC ARTHROPATHY
     Dosage: 40MG/14 D, STRENGTH:40 MG,2 PRE-FILLED PENS OF 0.4 ML;  SOLUTION FOR INJECTION IN PRE-FILLED PEN
     Route: 058
     Dates: start: 20130301, end: 20190228
  2. METHOTREXATE. [Suspect]
     Active Substance: METHOTREXATE
     Indication: PSORIATIC ARTHROPATHY
     Dosage: 10 MG / THURSDAY
     Route: 048
     Dates: start: 20130301

REACTIONS (3)
  - Urinary tract infection [Recovered/Resolved]
  - Prostate cancer metastatic [Not Recovered/Not Resolved]
  - Urinary retention [Recovered/Resolved]

NARRATIVE: CASE EVENT DATE: 2019
